FAERS Safety Report 12685904 (Version 1)
Quarter: 2016Q3

REPORT INFORMATION
  Report Type: Report from Study
  Country: US (occurrence: US)
  Receive Date: 20160825
  Receipt Date: 20160825
  Transmission Date: 20161109
  Serious: Yes (Death, Other)
  Sender: FDA-Public Use
  Company Number: US-UCBSA-2016032504

PATIENT
  Sex: Male

DRUGS (2)
  1. DEPAKOTE [Suspect]
     Active Substance: DIVALPROEX SODIUM
     Indication: SEIZURE
     Dosage: UNK
  2. LEVETIRACETAM. [Suspect]
     Active Substance: LEVETIRACETAM
     Indication: SEIZURE
     Dosage: UNK

REACTIONS (4)
  - Status epilepticus [Fatal]
  - Nightmare [Unknown]
  - Anger [Unknown]
  - Agitation [Unknown]

NARRATIVE: CASE EVENT DATE: 20160605
